FAERS Safety Report 10203446 (Version 2)
Quarter: 2014Q2

REPORT INFORMATION
  Report Type: Spontaneous
  Country: US (occurrence: None)
  Receive Date: 20140523
  Receipt Date: 20140605
  Transmission Date: 20141212
  Serious: Yes (Hospitalization)
  Sender: FDA-Public Use
  Company Number: UTC-048305

PATIENT
  Age: 18 Year
  Sex: Male
  Weight: 63 kg

DRUGS (3)
  1. REMODULIN [Suspect]
     Indication: PULMONARY ARTERIAL HYPERTENSION
     Route: 041
     Dates: start: 20090724
  2. COUMADIN/0014802/(WARFARIN SODIUM) [Concomitant]
  3. REVATIO ( SILDENAFIL CITRATE) UNKNOWN [Concomitant]

REACTIONS (3)
  - Device malfunction [None]
  - Drug dose omission [None]
  - Device leakage [None]
